FAERS Safety Report 5880957-2 (Version None)
Quarter: 2008Q3

REPORT INFORMATION
  Report Type: 
  Country: None (occurrence: None)
  Receive Date: 20080911
  Receipt Date: 20080902
  Transmission Date: 20090109
  Serious: Yes (Other)
  Sender: FDA-Public Use
  Company Number: CHPA2008US14697

PATIENT
  Age: 85 Year
  Sex: Male
  Weight: 28.8034 kg

DRUGS (2)
  1. PERDIEM OVERNIGHT RELIEF PILLS (NCH)(SENNA GLYCOSIDES (CA SALTS OF PUR [Suspect]
     Indication: CONSTIPATION
     Dosage: 15 MG, ONCE/SINGLE, ORAL
     Route: 048
     Dates: start: 20080902, end: 20080902
  2. RAZADYNE [Concomitant]

REACTIONS (4)
  - BLOOD PRESSURE DIASTOLIC DECREASED [None]
  - DIARRHOEA [None]
  - HAEMATOCHEZIA [None]
  - HAEMOGLOBIN DECREASED [None]
